FAERS Safety Report 5499578-9 (Version None)
Quarter: 2007Q4

REPORT INFORMATION
  Report Type: 
  Country: None (occurrence: None)
  Receive Date: 20071026
  Receipt Date: 20071017
  Transmission Date: 20080405
  Serious: Yes (Hospitalization)
  Sender: FDA-Public Use
  Company Number: US-ELI_LILLY_AND_COMPANY-US200710004234

PATIENT
  Age: 87 Year
  Sex: Female

DRUGS (2)
  1. HUMALOG [Suspect]
     Indication: DIABETES MELLITUS
     Dosage: UNK, AS NEEDED
  2. LANTUS [Concomitant]
     Dosage: 40 U, EACH EVENING

REACTIONS (4)
  - BLOOD GLUCOSE FLUCTUATION [None]
  - CORNEAL DEPOSITS [None]
  - GASTRIC HAEMORRHAGE [None]
  - VISUAL ACUITY REDUCED [None]
